FAERS Safety Report 21642241 (Version 1)
Quarter: 2022Q4

REPORT INFORMATION
  Report Type: Report from Study
  Country: US (occurrence: US)
  Receive Date: 20221125
  Receipt Date: 20221125
  Transmission Date: 20230112
  Serious: No
  Sender: FDA-Public Use
  Company Number: US-ABBVIE-4213256

PATIENT
  Sex: Male

DRUGS (1)
  1. VENCLEXTA [Suspect]
     Active Substance: VENETOCLAX
     Indication: Acute myeloid leukaemia (in remission)
     Dosage: TAKE 1 TABLET BY MOUTH WITH FOOD AND A FULL GLASS OF WATER FOR 10 DAYS OF EVERY 28 DAY CYCLE.??FO...
     Route: 048

REACTIONS (1)
  - Off label use [Unknown]
